FAERS Safety Report 22035284 (Version 1)
Quarter: 2023Q1

REPORT INFORMATION
  Report Type: Spontaneous
  Country: US (occurrence: None)
  Receive Date: 20230223
  Receipt Date: 20230223
  Transmission Date: 20230417
  Serious: Yes (Other)
  Sender: FDA-Public Use
  Company Number: None

PATIENT
  Age: 67 Year
  Sex: Female
  Weight: 63 kg

DRUGS (2)
  1. TRIAMCINOLONE ACETONIDE [Suspect]
     Active Substance: TRIAMCINOLONE ACETONIDE
     Indication: Arthralgia
     Dates: start: 20230201, end: 20230201
  2. LIDOCAINE [Suspect]
     Active Substance: LIDOCAINE

REACTIONS (12)
  - Dizziness [None]
  - Asthenia [None]
  - Feeling hot [None]
  - Hyperhidrosis [None]
  - Dry mouth [None]
  - Paralysis [None]
  - Injection related reaction [None]
  - Blood pressure decreased [None]
  - Tremor [None]
  - Paraesthesia [None]
  - Feeling abnormal [None]
  - Cerebrovascular accident [None]

NARRATIVE: CASE EVENT DATE: 20230201
